FAERS Safety Report 6235124-X (Version None)
Quarter: 2009Q2

REPORT INFORMATION
  Report Type: 
  Country: None (occurrence: None)
  Receive Date: 20090618
  Receipt Date: 20090611
  Transmission Date: 20091009
  Serious: Yes (Death, Hospitalization, Other)
  Sender: FDA-Public Use
  Company Number: IL-ELI_LILLY_AND_COMPANY-IL200903003736

PATIENT
  Age: 59 Year
  Sex: Female
  Weight: 60 kg

DRUGS (2)
  1. GEMZAR [Suspect]
     Indication: BREAST CANCER METASTATIC
     Dosage: 1600 MG, UNK
     Route: 042
     Dates: start: 20081001, end: 20090101
  2. CARBOPLATIN [Concomitant]
     Indication: BREAST CANCER METASTATIC
     Dosage: 300 MG, UNK
     Route: 042
     Dates: start: 20081001, end: 20090101

REACTIONS (3)
  - BILE DUCT OBSTRUCTION [None]
  - DEATH [None]
  - HEPATITIS CHOLESTATIC [None]
